FAERS Safety Report 8333444-6 (Version None)
Quarter: 2012Q2

REPORT INFORMATION
  Report Type: 
  Country: None (occurrence: None)
  Receive Date: 20120503
  Receipt Date: 20120423
  Transmission Date: 20120825
  Serious: Yes (Other)
  Sender: FDA-Public Use
  Company Number: US-SANOFI-AVENTIS-2012SA028966

PATIENT
  Sex: Female

DRUGS (2)
  1. ALLEGRA-D 12 HOUR [Suspect]
     Route: 065
  2. ANTIBIOTICS [Concomitant]

REACTIONS (1)
  - SYNCOPE [None]
